FAERS Safety Report 23890225 (Version 2)
Quarter: 2024Q2

REPORT INFORMATION
  Report Type: Report from Study
  Country: US (occurrence: None)
  Receive Date: 20240523
  Receipt Date: 20240530
  Transmission Date: 20240716
  Serious: Yes (Other)
  Sender: FDA-Public Use
  Company Number: 2024A120096

PATIENT
  Sex: Male

DRUGS (1)
  1. CALQUENCE [Suspect]
     Active Substance: ACALABRUTINIB
     Route: 048

REACTIONS (8)
  - Lymphoma [Unknown]
  - Asthenia [Unknown]
  - Flatulence [Unknown]
  - Headache [Unknown]
  - Skin discolouration [Unknown]
  - Nocturia [Unknown]
  - Photophobia [Unknown]
  - Colonoscopy [Unknown]
